FAERS Safety Report 25160209 (Version 1)
Quarter: 2025Q2

REPORT INFORMATION
  Report Type: Spontaneous
  Country: US (occurrence: None)
  Receive Date: 20250403
  Receipt Date: 20250403
  Transmission Date: 20250717
  Serious: Yes (Death)
  Sender: FDA-CTU
  Company Number: None

PATIENT
  Age: 79 Year
  Sex: Male

DRUGS (10)
  1. PIRFENIDONE [Suspect]
     Active Substance: PIRFENIDONE
     Indication: Idiopathic pulmonary fibrosis
     Dosage: FREQUENCY : 3 TIMES A DAY;?
     Route: 048
     Dates: start: 20190910, end: 20240730
  2. DABIGATRAN [Concomitant]
     Active Substance: DABIGATRAN
  3. METOPROLOL [Concomitant]
     Active Substance: METOPROLOL
  4. atorastastic [Concomitant]
  5. BENZONATATE [Concomitant]
     Active Substance: BENZONATATE
  6. TADALAFIL [Concomitant]
     Active Substance: TADALAFIL
  7. FLONASE [Concomitant]
     Active Substance: FLUTICASONE PROPIONATE
  8. ALBUTEROL SULFATE [Concomitant]
     Active Substance: ALBUTEROL SULFATE
  9. FAMOTIDINE [Concomitant]
     Active Substance: FAMOTIDINE
  10. NEILMED SINUS RINSE [Concomitant]
     Active Substance: SODIUM BICARBONATE\SODIUM CHLORIDE

REACTIONS (5)
  - Weight decreased [None]
  - Nausea [None]
  - Decreased appetite [None]
  - Idiopathic pulmonary fibrosis [None]
  - Disease progression [None]

NARRATIVE: CASE EVENT DATE: 20240730
